FAERS Safety Report 9570469 (Version 1)
Quarter: 2013Q3

REPORT INFORMATION
  Report Type: Spontaneous
  Country: US (occurrence: US)
  Receive Date: 20130930
  Receipt Date: 20130930
  Transmission Date: 20140515
  Serious: No
  Sender: FDA-Public Use
  Company Number: US-AMGEN-USASP2013064045

PATIENT
  Age: 46 Year
  Sex: Female
  Weight: 63.04 kg

DRUGS (6)
  1. ENBREL [Suspect]
     Indication: PRODUCT USED FOR UNKNOWN INDICATION
     Dosage: 50 MG, QWK
     Route: 058
  2. MOTRIN [Concomitant]
     Dosage: 400 MG, UNK
     Route: 048
  3. ULTRAM                             /00599202/ [Concomitant]
     Dosage: 50 MG, UNK
     Route: 048
  4. METHOTREXATE [Concomitant]
     Dosage: 2.5 MG, UNK
     Route: 048
  5. FOLIC ACID [Concomitant]
     Dosage: UNK
     Route: 048
  6. TYLENOL 8 HOUR [Concomitant]
     Dosage: 650 MG, UNK
     Route: 048

REACTIONS (1)
  - Skin infection [Recovered/Resolved]
